FAERS Safety Report 21876039 (Version 5)
Quarter: 2024Q1

REPORT INFORMATION
  Report Type: Report from Study
  Country: US (occurrence: US)
  Receive Date: 20230118
  Receipt Date: 20240214
  Transmission Date: 20240409
  Serious: Yes (Other)
  Sender: FDA-Public Use
  Company Number: US-ABBVIE-4272653

PATIENT
  Sex: Female

DRUGS (3)
  1. IMBRUVICA [Suspect]
     Active Substance: IBRUTINIB
     Indication: Follicular lymphoma
     Dosage: FORM STRENGTH: 420 MILLIGRAM
     Route: 048
     Dates: start: 20150410
  2. IMBRUVICA [Suspect]
     Active Substance: IBRUTINIB
     Indication: Follicular lymphoma
     Dosage: FORM STRENGTH: 420 MG
     Route: 048
     Dates: start: 202002
  3. IMBRUVICA [Suspect]
     Active Substance: IBRUTINIB
     Indication: Follicular lymphoma
     Route: 048
     Dates: start: 201503

REACTIONS (24)
  - Malignant pleural effusion [Unknown]
  - Subdural haematoma [Unknown]
  - Chest pain [Unknown]
  - Rhinorrhoea [Unknown]
  - Blood test abnormal [Unknown]
  - Illness [Unknown]
  - Fall [Unknown]
  - Malaise [Unknown]
  - Bile duct stone [Unknown]
  - Head injury [Unknown]
  - Chronic kidney disease [Unknown]
  - Atrial fibrillation [Unknown]
  - Cholecystectomy [Unknown]
  - Mouth ulceration [Recovered/Resolved]
  - Emotional disorder [Unknown]
  - Oropharyngeal pain [Unknown]
  - Kidney enlargement [Unknown]
  - Renal cyst [Unknown]
  - Weight decreased [Unknown]
  - Glomerular filtration rate decreased [Unknown]
  - Mobility decreased [Unknown]
  - Energy increased [Unknown]
  - Loss of personal independence in daily activities [Unknown]
  - Influenza [Unknown]

NARRATIVE: CASE EVENT DATE: 20230101
